FAERS Safety Report 18166038 (Version 6)
Quarter: 2020Q4

REPORT INFORMATION
  Report Type: Spontaneous
  Country: JP (occurrence: JP)
  Receive Date: 20200819
  Receipt Date: 20201229
  Transmission Date: 20210113
  Serious: Yes (Death, Hospitalization, Other)
  Sender: FDA-Public Use
  Company Number: JP-009507513-2008JPN001454J

PATIENT
  Age: 8 Decade

DRUGS (2)
  1. CUBICIN [Suspect]
     Active Substance: DAPTOMYCIN
     Indication: STREPTOCOCCAL ABSCESS
     Dosage: UNK
     Route: 041
     Dates: start: 202008
  2. NOXAFIL [Suspect]
     Active Substance: POSACONAZOLE
     Dosage: UNK
     Route: 048

REACTIONS (5)
  - Necrotising fasciitis streptococcal [Recovered/Resolved]
  - Sepsis [Fatal]
  - Hepatic function abnormal [Unknown]
  - Off label use [Unknown]
  - Blood creatine phosphokinase increased [Unknown]

NARRATIVE: CASE EVENT DATE: 2020
